FAERS Safety Report 26206433 (Version 1)
Quarter: 2025Q4

REPORT INFORMATION
  Report Type: Spontaneous
  Country: CN (occurrence: CN)
  Receive Date: 20251229
  Receipt Date: 20251229
  Transmission Date: 20260117
  Serious: Yes (Other)
  Sender: ALEXION PHARMACEUTICALS
  Company Number: CN-AstraZeneca-CH-01021472A

PATIENT
  Age: 74 Year
  Sex: Male

DRUGS (5)
  1. LOSEC [Suspect]
     Active Substance: OMEPRAZOLE
     Dosage: 40 MILLIGRAM, Q12H
  2. LOSEC [Suspect]
     Active Substance: OMEPRAZOLE
     Dosage: 40 MILLIGRAM, Q12H
     Route: 065
  3. LOSEC [Suspect]
     Active Substance: OMEPRAZOLE
     Dosage: 20 MILLIGRAM, Q12H
     Route: 065
  4. PIPERACILLIN AND TAZOBACTAM [Suspect]
     Active Substance: PIPERACILLIN SODIUM\TAZOBACTAM SODIUM
     Dosage: 4.5 GRAM, Q8H
     Route: 065
  5. RANITIDINE [Suspect]
     Active Substance: RANITIDINE
     Dosage: 50 MILLIGRAM, QD
     Route: 065

REACTIONS (2)
  - Clostridium difficile infection [Unknown]
  - Diarrhoea [Recovered/Resolved]
